FAERS Safety Report 10653203 (Version 1)
Quarter: 2014Q4

REPORT INFORMATION
  Report Type: Spontaneous
  Country: FR (occurrence: FR)
  Receive Date: 20141215
  Receipt Date: 20141215
  Transmission Date: 20150529
  Serious: Yes (Hospitalization)
  Sender: FDA-Public Use
  Company Number: FR-GLAXOSMITHKLINE-FR2014GSK034617

PATIENT
  Age: 72 Year
  Sex: Female

DRUGS (5)
  1. SODIUM PRAVASTATINE [Suspect]
     Active Substance: PRAVASTATIN SODIUM
     Dosage: 20 MG, UNK
     Route: 048
  2. SERETIDE [Suspect]
     Active Substance: FLUTICASONE FUROATE\SALMETEROL XINAFOATE
     Dosage: 1000 UNK, BID
     Route: 048
     Dates: start: 2009
  3. KARDEGIC [Suspect]
     Active Substance: ASPIRIN LYSINE
     Dosage: 75 MG, QD
     Route: 048
  4. MONO TILDIEM LP [Suspect]
     Active Substance: DILTIAZEM HYDROCHLORIDE
     Dosage: 200 MG, QD
     Route: 048
     Dates: start: 2006
  5. COZAAR [Suspect]
     Active Substance: LOSARTAN POTASSIUM
     Dosage: 100 MG, QD
     Route: 048
     Dates: start: 2006, end: 201410

REACTIONS (5)
  - Rash maculo-papular [Not Recovered/Not Resolved]
  - Toxic skin eruption [None]
  - Pruritus [Not Recovered/Not Resolved]
  - Eczema [None]
  - Lichenoid keratosis [None]

NARRATIVE: CASE EVENT DATE: 201111
